FAERS Safety Report 7617091-7 (Version None)
Quarter: 2011Q3

REPORT INFORMATION
  Report Type: 
  Country: None (occurrence: None)
  Receive Date: 20110718
  Receipt Date: 20110630
  Transmission Date: 20111222
  Serious: Yes (Other)
  Sender: FDA-Public Use
  Company Number: PHHY2011US58756

PATIENT
  Sex: Male

DRUGS (6)
  1. HYDROCHLOROTHIAZIDE [Suspect]
  2. ASPIRIN [Suspect]
     Dosage: 81 MG, UNK
  3. DIOVAN [Suspect]
     Dosage: 320 MG AT BEDTIME
  4. SIMVASTATIN [Suspect]
     Dosage: 20 MG, UNK
  5. CARVEDILOL [Suspect]
     Dosage: 25 MG, BID
  6. VIAGRA [Suspect]
     Dosage: UNK UKN, UNK

REACTIONS (1)
  - RENAL IMPAIRMENT [None]
